FAERS Safety Report 19447478 (Version 6)
Quarter: 2022Q1

REPORT INFORMATION
  Report Type: Report from Study
  Country: BR (occurrence: BR)
  Receive Date: 20210622
  Receipt Date: 20220215
  Transmission Date: 20220424
  Serious: Yes (Other)
  Sender: FDA-Public Use
  Company Number: NVSC2021BR133077

PATIENT
  Age: 62 Year
  Sex: Female

DRUGS (5)
  1. PIQRAY [Suspect]
     Active Substance: ALPELISIB
     Indication: Breast cancer metastatic
     Dosage: 300 UNK
     Route: 065
  2. PIQRAY [Suspect]
     Active Substance: ALPELISIB
     Indication: Neoplasm malignant
     Dosage: 300 MG, QD (IN THE MORNING USE 1 TABLET OF 200 MG AND I THE NIGHT 2 TABLET OF 50 MG)
     Route: 065
     Dates: start: 20210603
  3. PIQRAY [Suspect]
     Active Substance: ALPELISIB
     Dosage: 300 MG, BID (200 MG IN THE MORNING AND 100 MG AT NIGHT)
     Route: 065
     Dates: start: 20210603
  4. PIQRAY [Suspect]
     Active Substance: ALPELISIB
     Dosage: 250 MG, QD (IN THE MORNING USE 1 TABLET OF 200 MG AND I THE NIGHT 1 TABLET OF 50 MG)
     Route: 065
  5. FULVESTRANT [Concomitant]
     Active Substance: FULVESTRANT
     Indication: Product used for unknown indication
     Dosage: UNK UNK, QW2
     Route: 065
     Dates: start: 20210608

REACTIONS (31)
  - Diabetes mellitus [Not Recovered/Not Resolved]
  - Blood glucose increased [Unknown]
  - Metastases to bone [Unknown]
  - Metastases to lung [Unknown]
  - Breast cancer metastatic [Unknown]
  - Malignant neoplasm progression [Unknown]
  - Thirst [Unknown]
  - Gingival erythema [Not Recovered/Not Resolved]
  - Nausea [Unknown]
  - Ageusia [Not Recovered/Not Resolved]
  - Dry mouth [Not Recovered/Not Resolved]
  - Mucosal dryness [Not Recovered/Not Resolved]
  - Nail disorder [Unknown]
  - Adverse drug reaction [Unknown]
  - Taste disorder [Recovering/Resolving]
  - Malaise [Recovered/Resolved]
  - Pain [Unknown]
  - Bone pain [Unknown]
  - Coccydynia [Unknown]
  - Dizziness [Unknown]
  - Vomiting [Recovered/Resolved]
  - Alopecia [Unknown]
  - Abdominal pain [Unknown]
  - Constipation [Not Recovered/Not Resolved]
  - Fatigue [Unknown]
  - Dysgeusia [Recovering/Resolving]
  - Diarrhoea [Recovered/Resolved]
  - Inappropriate schedule of product administration [Not Recovered/Not Resolved]
  - Product administration error [Recovered/Resolved]
  - Ill-defined disorder [Unknown]
  - Drug ineffective [Unknown]

NARRATIVE: CASE EVENT DATE: 20210101
